FAERS Safety Report 10645901 (Version 1)
Quarter: 2014Q4

REPORT INFORMATION
  Report Type: Spontaneous
  Country: CA (occurrence: CA)
  Receive Date: 20141211
  Receipt Date: 20141211
  Transmission Date: 20150529
  Serious: Yes (Other)
  Sender: FDA-Public Use
  Company Number: CA-009507513-1412CAN005832

PATIENT

DRUGS (1)
  1. HYDRASENSE MEDIUM STREAM [Suspect]
     Active Substance: SEA WATER
     Route: 065

REACTIONS (1)
  - Hypersensitivity [Unknown]
